FAERS Safety Report 10632038 (Version 1)
Quarter: 2014Q4

REPORT INFORMATION
  Report Type: Spontaneous
  Country: US (occurrence: US)
  Receive Date: 20141205
  Receipt Date: 20141205
  Transmission Date: 20150529
  Serious: No
  Sender: FDA-Public Use
  Company Number: US-BRISTOL-MYERS SQUIBB COMPANY-21552955

PATIENT
  Age: 77 Year
  Sex: Female
  Weight: 76.19 kg

DRUGS (3)
  1. METFORMIN HCL [Concomitant]
     Active Substance: METFORMIN HYDROCHLORIDE
  2. BYETTA [Suspect]
     Active Substance: EXENATIDE
     Indication: TYPE 2 DIABETES MELLITUS
     Dosage: BEFORE 2 YRS-STOPPED?OCT2014-OCT2014=5 MCG?17OCT14-ONGOING=10MCG
     Route: 058
     Dates: start: 20141017
  3. ACARBOSE. [Concomitant]
     Active Substance: ACARBOSE

REACTIONS (3)
  - Product quality issue [Unknown]
  - Drug ineffective [Not Recovered/Not Resolved]
  - Drug administration error [Unknown]

NARRATIVE: CASE EVENT DATE: 201410
